FAERS Safety Report 7448587-9 (Version None)
Quarter: 2011Q2

REPORT INFORMATION
  Report Type: 
  Country: None (occurrence: None)
  Receive Date: 20110429
  Receipt Date: 20100709
  Transmission Date: 20111010
  Serious: No
  Sender: FDA-Public Use
  Company Number: US-ASTRAZENECA-2010SE26875

PATIENT
  Age: 77 Year
  Sex: Male
  Weight: 90.7 kg

DRUGS (6)
  1. FISH OIL [Concomitant]
  2. ASPIRIN [Concomitant]
  3. NEXIUM [Suspect]
     Indication: GASTROOESOPHAGEAL REFLUX DISEASE
     Route: 048
     Dates: start: 20050101
  4. TOPROL-XL [Concomitant]
  5. TRAVATAN [Concomitant]
  6. M.V.I. [Concomitant]

REACTIONS (4)
  - ERUCTATION [None]
  - DRUG INEFFECTIVE [None]
  - DRUG DOSE OMISSION [None]
  - CHEST DISCOMFORT [None]
